FAERS Safety Report 17169036 (Version 3)
Quarter: 2020Q1

REPORT INFORMATION
  Report Type: Report from Study
  Country: NL (occurrence: NL)
  Receive Date: 20191218
  Receipt Date: 20200330
  Transmission Date: 20200409
  Serious: Yes (Other)
  Sender: FDA-Public Use
  Company Number: NL-AMGEN-NLDSL2019207429

PATIENT
  Age: 59 Year
  Sex: Female

DRUGS (20)
  1. BISOPROLOL [Concomitant]
     Active Substance: BISOPROLOL
     Dosage: 2.5 MILLIGRAM, TID
  2. MACROGOL [Concomitant]
     Active Substance: POLYETHYLENE GLYCOLS
     Dosage: PDR V DRANK (MOVIC/MOLAX/LAXT/GEN) 2D1S
  3. OMEPRAZOL [OMEPRAZOLE] [Concomitant]
     Active Substance: OMEPRAZOLE
     Dosage: 40 MILLIGRAM, QD
  4. LEVOCETIRIZINE [Concomitant]
     Active Substance: LEVOCETIRIZINE
     Dosage: 5 MILLIGRAM, QD
  5. TEMAZEPAM. [Concomitant]
     Active Substance: TEMAZEPAM
     Dosage: 10 MILLIGRAM, QD, 1D1C
  6. TRIAMCINOLONACETONIDE [Concomitant]
     Active Substance: TRIAMCINOLONE ACETONIDE
     Dosage: 40 MILLIGRAM PER MILLILITRE, AM 1ML (PAR).
  7. LANETTE WAX [Concomitant]
     Dosage: UNK, 2-3XD
  8. OXYBUTYNINE [OXYBUTYNIN] [Concomitant]
     Active Substance: OXYBUTYNIN
     Dosage: 2.5 MILLIGRAM, QD
  9. BECLOMETASONE;FORMOTEROL [Concomitant]
     Active Substance: BECLOMETHASONE\FORMOTEROL
     Dosage: 200/6UG/DO 120DO 2D2PF
  10. MONTELUKAST [Concomitant]
     Active Substance: MONTELUKAST SODIUM
     Dosage: 10 MILLIGRAM, QD
  11. SALBUTAMOL [Concomitant]
     Active Substance: ALBUTEROL
     Dosage: 200 MICROGRAM, CYCLOHALER 4D1C
  12. OXAZEPAM. [Concomitant]
     Active Substance: OXAZEPAM
     Dosage: 10 MILLIGRAM, 1-3XD 1T
  13. XGEVA [Suspect]
     Active Substance: DENOSUMAB
     Indication: PROPHYLAXIS
     Dosage: 120 MILLIGRAM (70MG/ML FLACON 1.7ML), Q4WK
     Route: 065
     Dates: start: 201712
  14. CETOMACROGOL [Concomitant]
     Active Substance: COSMETICS
     Dosage: 20 PERCENT, QD
  15. FLUTICASONE PROPIONATE. [Concomitant]
     Active Substance: FLUTICASONE PROPIONATE
     Dosage: 50UG/DO FL 150DO 1D2PF
  16. LETROZOL [Concomitant]
     Active Substance: LETROZOLE
     Dosage: 2.5 MILLIGRAM, QD
  17. METFORMINE [METFORMIN] [Concomitant]
     Active Substance: METFORMIN HYDROCHLORIDE
     Dosage: 500 MILLIGRAM, QD
  18. NAPROXEN. [Concomitant]
     Active Substance: NAPROXEN
     Dosage: 500 MILLIGRAM, 2-3D1T
  19. BISOPROLOL [Concomitant]
     Active Substance: BISOPROLOL
     Dosage: 2.5 MILLIGRAM, TID
  20. CALCIUM CARBONATE;COLECALCIFEROL [Concomitant]
     Active Substance: CALCIUM CARBONATE\CHOLECALCIFEROL
     Dosage: 1.25G/800IE (500MG CA), QD

REACTIONS (3)
  - Adverse reaction [Unknown]
  - Arthralgia [Unknown]
  - Metastases to spine [Unknown]

NARRATIVE: CASE EVENT DATE: 2019
